FAERS Safety Report 13932324 (Version 3)
Quarter: 2017Q4

REPORT INFORMATION
  Report Type: Report from Study
  Country: JP (occurrence: JP)
  Receive Date: 20170904
  Receipt Date: 20171109
  Transmission Date: 20180320
  Serious: Yes (Hospitalization)
  Sender: FDA-Public Use
  Company Number: JP-JNJFOC-20170828190

PATIENT
  Age: 12 Month
  Sex: Male
  Weight: 9.7 kg

DRUGS (7)
  1. PREDNISOLONE SODIUM SUCCINATE [Concomitant]
     Active Substance: PREDNISOLONE SODIUM SUCCINATE
     Indication: KAWASAKI^S DISEASE
     Route: 042
     Dates: start: 20170131, end: 20170207
  2. PREDNISOLONE. [Concomitant]
     Active Substance: PREDNISOLONE
     Indication: KAWASAKI^S DISEASE
     Route: 048
     Dates: start: 20170212, end: 20170226
  3. PREDNISOLONE. [Concomitant]
     Active Substance: PREDNISOLONE
     Indication: KAWASAKI^S DISEASE
     Route: 048
     Dates: start: 20170208, end: 20170211
  4. ASPIRIN. [Concomitant]
     Active Substance: ASPIRIN
     Route: 048
     Dates: start: 20170202
  5. REMICADE [Suspect]
     Active Substance: INFLIXIMAB
     Indication: KAWASAKI^S DISEASE
     Route: 042
     Dates: start: 20170131, end: 20170131
  6. FERRIC PYROPHOSPHATE [Concomitant]
     Active Substance: FERRIC PYROPHOSPHATE
     Indication: IRON DEFICIENCY ANAEMIA
     Route: 048
     Dates: start: 20170222
  7. VARICELLA ZOSTER VACCINE [Concomitant]
     Active Substance: VARICELLA-ZOSTER VIRUS STRAIN OKA/MERCK LIVE ANTIGEN
     Route: 065
     Dates: start: 20161003, end: 20161003

REACTIONS (3)
  - Influenza [Recovered/Resolved]
  - Respiratory tract infection [Recovered/Resolved]
  - Kawasaki^s disease [Unknown]

NARRATIVE: CASE EVENT DATE: 20170217
